FAERS Safety Report 20382306 (Version 1)
Quarter: 2022Q1

REPORT INFORMATION
  Report Type: Spontaneous
  Country: US (occurrence: None)
  Receive Date: 20220127
  Receipt Date: 20220127
  Transmission Date: 20220423
  Serious: No
  Sender: FDA-Public Use
  Company Number: None

PATIENT
  Age: 67 Year
  Sex: Male
  Weight: 87 kg

DRUGS (2)
  1. METFORMIN HYDROCHLORIDE [Suspect]
     Active Substance: METFORMIN HYDROCHLORIDE
     Indication: Diabetes mellitus
     Dosage: FREQUENCY : TWICE A DAY;?
     Route: 048
     Dates: start: 20050302, end: 20220124
  2. PERFLUTREN [Suspect]
     Active Substance: PERFLUTREN
     Indication: Angiogram
     Route: 017
     Dates: start: 20220124, end: 20220124

REACTIONS (3)
  - Blood urea increased [None]
  - Blood creatinine increased [None]
  - Acute kidney injury [None]

NARRATIVE: CASE EVENT DATE: 20220122
